FAERS Safety Report 17216910 (Version 1)
Quarter: 2019Q4

REPORT INFORMATION
  Report Type: Spontaneous
  Country: US (occurrence: US)
  Receive Date: 20191231
  Receipt Date: 20191231
  Transmission Date: 20200122
  Serious: No
  Sender: FDA-Public Use
  Company Number: US-009507513-1912USA011428

PATIENT
  Sex: Female

DRUGS (1)
  1. NEXPLANON [Suspect]
     Active Substance: ETONOGESTREL
     Indication: CONTRACEPTION
     Dosage: 1 IMPLANT (68 MG), EVERY 3 YEARS
     Route: 059
     Dates: start: 20190117, end: 20191122

REACTIONS (4)
  - Hidradenitis [Unknown]
  - Acne [Unknown]
  - Weight increased [Unknown]
  - Menorrhagia [Unknown]

NARRATIVE: CASE EVENT DATE: 2019
